FAERS Safety Report 21764545 (Version 1)
Quarter: 2022Q4

REPORT INFORMATION
  Report Type: Other
  Country: IN (occurrence: None)
  Receive Date: 20221222
  Receipt Date: 20221222
  Transmission Date: 20230113
  Serious: Yes (Other)
  Sender: FDA-Public Use
  Company Number: IN-ROCHE-3244843

PATIENT
  Age: 58 Year
  Sex: Female

DRUGS (1)
  1. KADCYLA [Suspect]
     Active Substance: ADO-TRASTUZUMAB EMTANSINE
     Indication: Breast cancer
     Dosage: FORMULATION: INJECTION
     Route: 042
     Dates: start: 20211123

REACTIONS (5)
  - Disease progression [Unknown]
  - Body mass index increased [Unknown]
  - Abdominal pain [Unknown]
  - Vomiting [Unknown]
  - Gastric ulcer [Unknown]
